FAERS Safety Report 23211170 (Version 1)
Quarter: 2023Q4

REPORT INFORMATION
  Report Type: Spontaneous
  Country: US (occurrence: US)
  Receive Date: 20231121
  Receipt Date: 20231121
  Transmission Date: 20240110
  Serious: Yes (Hospitalization)
  Sender: FDA-Public Use
  Company Number: US-SA-SAC20231117000412

PATIENT
  Age: 77 Year
  Sex: Male

DRUGS (1)
  1. SOLIQUA 100/33 [Suspect]
     Active Substance: INSULIN GLARGINE\LIXISENATIDE
     Indication: Diabetes mellitus
     Dosage: UNK
     Route: 065

REACTIONS (3)
  - Hospitalisation [Unknown]
  - Haemoptysis [Unknown]
  - Productive cough [Unknown]

NARRATIVE: CASE EVENT DATE: 20230101
